FAERS Safety Report 20895149 (Version 2)
Quarter: 2022Q2

REPORT INFORMATION
  Report Type: Report from Study
  Country: AR (occurrence: None)
  Receive Date: 20220531
  Receipt Date: 20220601
  Transmission Date: 20220721
  Serious: Yes (Death)
  Sender: FDA-Public Use
  Company Number: AR-Merck Healthcare KGaA-9326450

PATIENT
  Age: 65 Year
  Sex: Male

DRUGS (1)
  1. BAVENCIO [Suspect]
     Active Substance: AVELUMAB
     Indication: Transitional cell carcinoma
     Dates: start: 20220314

REACTIONS (1)
  - Death [Fatal]

NARRATIVE: CASE EVENT DATE: 20220525
